FAERS Safety Report 7201592-X (Version None)
Quarter: 2010Q4

REPORT INFORMATION
  Report Type: 
  Country: None (occurrence: None)
  Receive Date: 20101216
  Receipt Date: 20101210
  Transmission Date: 20110411
  Serious: Yes (Hospitalization)
  Sender: FDA-Public Use
  Company Number: DE-1184401

PATIENT
  Sex: Female

DRUGS (1)
  1. TRAVATAN [Suspect]
     Dosage: OPHTHALMIC
     Route: 047

REACTIONS (2)
  - ATRIAL FIBRILLATION [None]
  - PALPITATIONS [None]
